FAERS Safety Report 24679411 (Version 1)
Quarter: 2024Q4

REPORT INFORMATION
  Report Type: Spontaneous
  Country: GB (occurrence: GB)
  Receive Date: 20241129
  Receipt Date: 20241129
  Transmission Date: 20250114
  Serious: Yes (Other)
  Sender: TEVA
  Company Number: GB-MHRA-TPP24369624C11476657YC1731933353503

PATIENT
  Age: 44 Year
  Sex: Female
  Weight: 83 kg

DRUGS (5)
  1. LAMOTRIGINE [Suspect]
     Active Substance: LAMOTRIGINE
     Indication: Product used for unknown indication
     Route: 065
     Dates: start: 20241106
  2. MOMETASONE [Concomitant]
     Active Substance: MOMETASONE
     Indication: Product used for unknown indication
     Dosage: APPLY ONCE A DAY AS PER DERMATOLOGY
     Route: 065
     Dates: start: 20241024
  3. QUETIAPINE [Concomitant]
     Active Substance: QUETIAPINE
     Indication: Product used for unknown indication
     Dosage: AT NIGHT
     Route: 065
     Dates: start: 20240918, end: 20241025
  4. LITHIUM [Concomitant]
     Active Substance: LITHIUM
     Indication: Product used for unknown indication
     Dosage: TAKE TWO TABLETS ONCE DAILY
     Route: 065
     Dates: start: 20240329
  5. LEVOTHYROXINE [Concomitant]
     Active Substance: LEVOTHYROXINE
     Indication: Product used for unknown indication
     Dosage: TAKE ONE TABLET EACH MORNING
     Route: 065
     Dates: start: 20241011, end: 20241108

REACTIONS (2)
  - Stevens-Johnson syndrome [Recovered/Resolved]
  - Condition aggravated [Recovered/Resolved]
